FAERS Safety Report 13134948 (Version 1)
Quarter: 2017Q1

REPORT INFORMATION
  Report Type: Spontaneous
  Country: IN (occurrence: IN)
  Receive Date: 20170120
  Receipt Date: 20170120
  Transmission Date: 20170428
  Serious: Yes (Other)
  Sender: FDA-Public Use
  Company Number: IN-PFIZER INC-2017023025

PATIENT
  Age: 24 Year
  Sex: Female

DRUGS (1)
  1. PHENYTOIN. [Suspect]
     Active Substance: PHENYTOIN
     Indication: GENERALISED TONIC-CLONIC SEIZURE
     Dosage: 300 MG, 1X/DAY
     Route: 048

REACTIONS (10)
  - Delusion [Recovered/Resolved]
  - Nervous system disorder [Recovered/Resolved]
  - Substance-induced psychotic disorder [Recovered/Resolved]
  - Hallucination, auditory [Recovered/Resolved]
  - Nystagmus [Recovered/Resolved]
  - Anticoagulation drug level above therapeutic [Unknown]
  - Suspiciousness [Recovered/Resolved]
  - Hypotonia [Recovered/Resolved]
  - Toxicity to various agents [Recovered/Resolved]
  - Dysmetria [Recovered/Resolved]
